FAERS Safety Report 18569706 (Version 1)
Quarter: 2020Q4

REPORT INFORMATION
  Report Type: Spontaneous
  Country: ES (occurrence: ES)
  Receive Date: 20201202
  Receipt Date: 20201202
  Transmission Date: 20210114
  Serious: Yes (Hospitalization)
  Sender: FDA-Public Use
  Company Number: ES-PFIZER INC-2020470386

PATIENT
  Age: 94 Year
  Sex: Male

DRUGS (3)
  1. FLUOXETINE [Concomitant]
     Active Substance: FLUOXETINE HYDROCHLORIDE
     Indication: MIXED ANXIETY AND DEPRESSIVE DISORDER
     Dosage: 20 MG, 1X/DAY
     Route: 048
     Dates: start: 20200720
  2. LORAZEPAM. [Concomitant]
     Active Substance: LORAZEPAM
     Indication: MIXED ANXIETY AND DEPRESSIVE DISORDER
     Dosage: 1 MG, 1X/DAY
     Route: 048
     Dates: start: 20200720
  3. HUMATIN [Suspect]
     Active Substance: PAROMOMYCIN SULFATE
     Indication: GASTROENTERITIS CRYPTOSPORIDIAL
     Dosage: 250 MG, 4X/DAY (EVERY 6 HOURS)
     Route: 048
     Dates: start: 20200724, end: 20200727

REACTIONS (1)
  - Renal impairment [Recovered/Resolved]

NARRATIVE: CASE EVENT DATE: 20200727
